FAERS Safety Report 16880003 (Version 1)
Quarter: 2019Q4

REPORT INFORMATION
  Report Type: Spontaneous
  Country: TH (occurrence: TH)
  Receive Date: 20191003
  Receipt Date: 20191003
  Transmission Date: 20200122
  Serious: Yes (Hospitalization, Other)
  Sender: FDA-Public Use
  Company Number: TH-B.I. PHARMACEUTICALS,INC./RIDGEFIELD-2019-BI-104749

PATIENT
  Age: 86 Year
  Sex: Female

DRUGS (6)
  1. PRADAXA [Suspect]
     Active Substance: DABIGATRAN ETEXILATE MESYLATE
     Indication: ATRIAL FIBRILLATION
     Route: 048
     Dates: end: 20190825
  2. FOLIC ACID. [Concomitant]
     Active Substance: FOLIC ACID
     Indication: PRODUCT USED FOR UNKNOWN INDICATION
     Route: 048
  3. ATORVASTATIN [Concomitant]
     Active Substance: ATORVASTATIN
     Indication: PRODUCT USED FOR UNKNOWN INDICATION
     Route: 048
  4. FF 10501 [Concomitant]
     Indication: PRODUCT USED FOR UNKNOWN INDICATION
     Route: 048
  5. METFORMIN [Concomitant]
     Active Substance: METFORMIN HYDROCHLORIDE
     Indication: PRODUCT USED FOR UNKNOWN INDICATION
     Route: 048
  6. BISOPROLOL [Concomitant]
     Active Substance: BISOPROLOL
     Indication: PRODUCT USED FOR UNKNOWN INDICATION
     Route: 048

REACTIONS (18)
  - Diarrhoea [Recovering/Resolving]
  - Acidosis [Unknown]
  - Activated partial thromboplastin time prolonged [Recovered/Resolved]
  - Fatigue [Unknown]
  - Wheezing [Unknown]
  - Anaemia [Unknown]
  - Conjunctival haemorrhage [Unknown]
  - Prothrombin time prolonged [Recovered/Resolved]
  - Thrombin time prolonged [Recovered/Resolved]
  - Ecchymosis [Unknown]
  - Upper gastrointestinal haemorrhage [Unknown]
  - Hypovolaemic shock [Unknown]
  - Faeces discoloured [Recovering/Resolving]
  - Overdose [Unknown]
  - Hypophagia [Unknown]
  - Fatigue [Unknown]
  - Diverticulum intestinal [Unknown]
  - Gastritis [Unknown]

NARRATIVE: CASE EVENT DATE: 20190602
